FAERS Safety Report 8289220-6 (Version None)
Quarter: 2012Q2

REPORT INFORMATION
  Report Type: 
  Country: None (occurrence: None)
  Receive Date: 20120417
  Receipt Date: 20120409
  Transmission Date: 20120825
  Serious: Yes (Other)
  Sender: FDA-Public Use
  Company Number: PHHY2012JP031155

PATIENT
  Sex: Male
  Weight: 80 kg

DRUGS (8)
  1. EXJADE [Suspect]
     Dosage: 1500 MG, DAILY
     Route: 048
     Dates: start: 20080806, end: 20090803
  2. NEORAL [Concomitant]
     Indication: APLASTIC ANAEMIA
     Dosage: 200 MG,
     Route: 048
     Dates: start: 20090803
  3. EXJADE [Suspect]
     Indication: IRON OVERLOAD
     Dosage: 1250 MG, DAILY
     Route: 048
     Dates: start: 20080723, end: 20080805
  4. LANSOPRAZOLE [Concomitant]
     Indication: PROPHYLAXIS
     Dosage: 15 MG
     Route: 048
     Dates: start: 20090803
  5. PROMACTA [Concomitant]
     Indication: PROPHYLAXIS
     Dosage: 150 MG,
     Route: 048
     Dates: start: 20090803
  6. NOVORAPID [Concomitant]
     Dates: start: 20090803
  7. GRAN [Concomitant]
     Indication: APLASTIC ANAEMIA
     Dates: start: 20090803
  8. DESFERAL [Concomitant]
     Indication: IRON OVERLOAD
     Route: 030
     Dates: start: 20080509

REACTIONS (2)
  - DISEASE PROGRESSION [None]
  - APLASTIC ANAEMIA [None]
